FAERS Safety Report 18060282 (Version 2)
Quarter: 2020Q3

REPORT INFORMATION
  Report Type: Spontaneous
  Country: US (occurrence: US)
  Receive Date: 20200723
  Receipt Date: 20200730
  Transmission Date: 20201103
  Serious: Yes (Hospitalization, Other)
  Sender: FDA-Public Use
  Company Number: US-HIKMA PHARMACEUTICALS USA INC.-US-H14001-20-03435

PATIENT
  Age: 43 Year
  Sex: Male

DRUGS (14)
  1. VALPROIC ACID. [Suspect]
     Active Substance: VALPROIC ACID
     Indication: SEIZURE
     Route: 065
  2. TOPIRAMATE. [Concomitant]
     Active Substance: TOPIRAMATE
     Indication: PARTIAL SEIZURES
     Dosage: UNKNOWN
     Route: 065
  3. OXCARBAZEPINE. [Concomitant]
     Active Substance: OXCARBAZEPINE
     Indication: PARTIAL SEIZURES
     Dosage: UNKNOWN
     Route: 065
  4. VALPROIC ACID. [Suspect]
     Active Substance: VALPROIC ACID
     Route: 042
  5. ZONISAMIDE. [Concomitant]
     Active Substance: ZONISAMIDE
     Route: 065
  6. LEVETIRACETAM. [Concomitant]
     Active Substance: LEVETIRACETAM
     Indication: SEIZURE
     Route: 065
  7. PHENYTOIN. [Concomitant]
     Active Substance: PHENYTOIN
     Indication: PARTIAL SEIZURES
     Dosage: UNKNOWN
     Route: 065
  8. PREGABALIN. [Concomitant]
     Active Substance: PREGABALIN
     Indication: PARTIAL SEIZURES
     Dosage: UNKNOWN
     Route: 065
  9. ZONISAMIDE. [Concomitant]
     Active Substance: ZONISAMIDE
     Indication: SEIZURE
     Route: 065
  10. ZONISAMIDE. [Concomitant]
     Active Substance: ZONISAMIDE
     Route: 065
  11. LAMOTRIGINE. [Concomitant]
     Active Substance: LAMOTRIGINE
     Indication: PARTIAL SEIZURES
     Dosage: UNKNOWN
     Route: 065
  12. LORAZEPAM. [Concomitant]
     Active Substance: LORAZEPAM
     Indication: PRODUCT USED FOR UNKNOWN INDICATION
     Dosage: UNKNOWN
     Route: 042
  13. VALPROIC ACID. [Suspect]
     Active Substance: VALPROIC ACID
     Route: 065
  14. ZONISAMIDE. [Concomitant]
     Active Substance: ZONISAMIDE
     Route: 065

REACTIONS (7)
  - Confusional state [Recovering/Resolving]
  - Hyperammonaemia [Recovered/Resolved]
  - Lethargy [Recovering/Resolving]
  - Weight increased [Recovering/Resolving]
  - Brain oedema [Recovering/Resolving]
  - Hyperammonaemic encephalopathy [Recovering/Resolving]
  - Drug interaction [Recovering/Resolving]
